FAERS Safety Report 16823589 (Version 1)
Quarter: 2019Q3

REPORT INFORMATION
  Report Type: Report from Study
  Country: US (occurrence: US)
  Receive Date: 20190918
  Receipt Date: 20190918
  Transmission Date: 20191005
  Serious: Yes (Hospitalization)
  Sender: FDA-Public Use
  Company Number: US-BAXTER-2019BAX017962

PATIENT
  Age: 74 Year
  Sex: Female

DRUGS (17)
  1. PEGFILGRASTIM [Suspect]
     Active Substance: PEGFILGRASTIM
     Dosage: REGIMEN B, 6 MG (OR FILGRASTIM 5-10 MCG/KG DAILY)
     Route: 058
  2. BLINATUMOMAB [Suspect]
     Active Substance: BLINATUMOMAB
     Dosage: 28 MCG/DAY, CONTINUOUS INFUSION ON DAYS 1-29 OF CYCLES 6, 11 AND 12
     Route: 042
  3. INOTUZUMAB OZOGAMICIN [Suspect]
     Active Substance: INOTUZUMAB OZOGAMICIN
     Dosage: LAST DOSE PRIOR TO SAE
     Route: 042
     Dates: start: 20190613, end: 20190613
  4. METHOTREXATE SODIUM. [Suspect]
     Active Substance: METHOTREXATE SODIUM
     Indication: PRODUCT USED FOR UNKNOWN INDICATION
     Dosage: REGIMEN B, 50 MG/M2, OVER 2HRS ON DAY 1 IN CYCLES 2, 4, 8, 10
     Route: 042
  5. VINCRISTINE SULFATE. [Suspect]
     Active Substance: VINCRISTINE SULFATE
     Indication: PRODUCT USED FOR UNKNOWN INDICATION
     Dosage: REGIMEN A, 2 MG, DAY 1 AND DAY 8 (APPROXIMATE), CYCLES 1, 3, 7, 9
     Route: 042
  6. RITUXIMAB. [Suspect]
     Active Substance: RITUXIMAB
     Indication: PRODUCT USED FOR UNKNOWN INDICATION
     Dosage: REGIMEN A, 375 MG/M2, ON DAY 2 AND DAY 8 OF CYCLES 1 AND 3
     Route: 042
  7. RITUXIMAB. [Suspect]
     Active Substance: RITUXIMAB
     Dosage: REGIMEN B, 375 MG/M2, ON DAY 2 AND 8 OF CYCLES 2 AND 4
     Route: 042
  8. BLINATUMOMAB [Suspect]
     Active Substance: BLINATUMOMAB
     Indication: PRODUCT USED FOR UNKNOWN INDICATION
     Dosage: CONTINUOUS IV, 9 UG/DAY ON DAYS 1-4 OF CYCLE 5 ONLY
     Route: 042
  9. CYCLOPHOSPHAMIDE FOR INJECTION, USP [Suspect]
     Active Substance: CYCLOPHOSPHAMIDE
     Indication: PRODUCT USED FOR UNKNOWN INDICATION
     Dosage: REGIMEN A, 150 MG/M2, OVER 3 HOURS TWICE A DAY ON DAYS 1-3, CYCLES 1, 3, 7, 9
     Route: 042
  10. INOTUZUMAB OZOGAMICIN [Suspect]
     Active Substance: INOTUZUMAB OZOGAMICIN
     Indication: ACUTE LYMPHOCYTIC LEUKAEMIA
     Dosage: REGIMEN A, 0.3 MG/M2, OVER 1 HOUR ON DAYS 2 AND 8 OF CYCLES 1 AND 3 [APPROXIMATE]
     Route: 042
     Dates: start: 20190131
  11. PEGFILGRASTIM [Suspect]
     Active Substance: PEGFILGRASTIM
     Indication: PRODUCT USED FOR UNKNOWN INDICATION
     Dosage: REGIMEN A, 6 MG, (OR FILGRASTIM 5-10 MCG/KG DAILY) ON DAY 4
     Route: 058
  12. CYTARABINE. [Suspect]
     Active Substance: CYTARABINE
     Indication: PRODUCT USED FOR UNKNOWN INDICATION
     Dosage: REGIMEN B, 500 MG/M2, OVER 3 HOURS TWICE A DAY X 4 DOSES ON DAYS 2 AND 3, CYCLES 2, 4, 8, 10
     Route: 042
  13. METHOTREXATE SODIUM. [Suspect]
     Active Substance: METHOTREXATE SODIUM
     Dosage: REGIMEN B, 200 MG/M2, CONTINUOUS INFUSION OVER 22 HOURS ON DAY 1 IN CYCLES 2, 4, 8, 10
     Route: 042
  14. DEXAMETHASONE. [Suspect]
     Active Substance: DEXAMETHASONE
     Indication: PRODUCT USED FOR UNKNOWN INDICATION
     Dosage: REGIMEN A, 20 MG, DAILY FOR 4 DAYS ON DAYS 1-4 AND DAYS 11-14 (APPROXIMATE), CYCLES 1, 3, 7,9
     Route: 042
  15. MESNEX [Suspect]
     Active Substance: MESNA
     Indication: PRODUCT USED FOR UNKNOWN INDICATION
     Dosage: REGIMEN A, 300 MG/M2, DAILY OVER 24 HOURS FOR 3 DAYS ON DAYS 1-3, CYCLES 1, 3, 7, 9
     Route: 042
  16. INOTUZUMAB OZOGAMICIN [Suspect]
     Active Substance: INOTUZUMAB OZOGAMICIN
     Dosage: REGIMEN B, 0.3 MG/M2, ON DAYS 2 AND 8 OF CYCLES 2 AND 4 [APPROXIMATE]
     Route: 042
  17. BLINATUMOMAB [Suspect]
     Active Substance: BLINATUMOMAB
     Dosage: CONTINUOUS IV, 28 MCG/DAY ON DAYS 4-29 OF CYCLE 5 ONLY
     Route: 042

REACTIONS (1)
  - Mental status changes [Recovered/Resolved]

NARRATIVE: CASE EVENT DATE: 20190713
